FAERS Safety Report 19429104 (Version 1)
Quarter: 2021Q2

REPORT INFORMATION
  Report Type: Spontaneous
  Country: US (occurrence: US)
  Receive Date: 20210617
  Receipt Date: 20210617
  Transmission Date: 20210717
  Serious: Yes (Hospitalization)
  Sender: FDA-Public Use
  Company Number: None

PATIENT
  Sex: Female

DRUGS (2)
  1. CYCLOBENZAPR [Concomitant]
     Active Substance: CYCLOBENZAPRINE
  2. TRETINOIN 10MG CAP [Suspect]
     Active Substance: TRETINOIN
     Indication: LEUKAEMIA
     Route: 048

REACTIONS (1)
  - Hospitalisation [None]
